FAERS Safety Report 8094469-1 (Version None)
Quarter: 2012Q1

REPORT INFORMATION
  Report Type: 
  Country: None (occurrence: None)
  Receive Date: 20120130
  Receipt Date: 20120117
  Transmission Date: 20120608
  Serious: Yes (Hospitalization, Disabling)
  Sender: FDA-Public Use
  Company Number: FR-ELI_LILLY_AND_COMPANY-FR201201004651

PATIENT
  Sex: Male

DRUGS (3)
  1. ZYPREXA [Suspect]
     Indication: PSYCHOTIC DISORDER
     Dosage: 20 MG, QD
     Route: 048
     Dates: start: 20000501
  2. DEPAKENE [Concomitant]
     Indication: GRAND MAL CONVULSION
  3. LORAZEPAM [Concomitant]
     Indication: ANXIETY

REACTIONS (1)
  - PHLEBITIS DEEP [None]
